FAERS Safety Report 4401237-8 (Version None)
Quarter: 2004Q3

REPORT INFORMATION
  Report Type: 
  Country: None (occurrence: None)
  Receive Date: 20040907
  Receipt Date: 20040113
  Transmission Date: 20050211
  Serious: No
  Sender: FDA-Public Use
  Company Number: US-BRISTOL-MYERS SQUIBB COMPANY-12477485

PATIENT
  Age: 61 Year
  Sex: Male
  Weight: 79 kg

DRUGS (8)
  1. COUMADIN [Suspect]
     Indication: CARDIAC PACEMAKER INSERTION
     Dosage: CURRENT NUMBER OF DOSAGES: ON 2 DAYS AND OFF THE 3RD DAY
     Route: 048
     Dates: start: 20031216
  2. COUMADIN [Suspect]
     Indication: ATRIAL FIBRILLATION
     Dosage: CURRENT NUMBER OF DOSAGES: ON 2 DAYS AND OFF THE 3RD DAY
     Route: 048
     Dates: start: 20031216
  3. COZAAR [Concomitant]
  4. PRAVACHOL [Concomitant]
  5. COLCHICINE [Concomitant]
  6. INDERAL [Concomitant]
     Dosage: 120MG IN MORNING AND 60MG AT EVENING
  7. ACIPHEX [Concomitant]
  8. FOLTX [Concomitant]

REACTIONS (2)
  - BLEPHAROSPASM [None]
  - GOUT [None]
